FAERS Safety Report 11573120 (Version 12)
Quarter: 2017Q1

REPORT INFORMATION
  Report Type: Report from Study
  Country: IL (occurrence: IL)
  Receive Date: 20150929
  Receipt Date: 20170206
  Transmission Date: 20170428
  Serious: Yes (Hospitalization)
  Sender: FDA-Public Use
  Company Number: IL-PFIZER INC-2015313049

PATIENT
  Age: 64 Year
  Sex: Male
  Weight: 92 kg

DRUGS (19)
  1. OMEPRADEX [Concomitant]
     Active Substance: OMEPRAZOLE
     Indication: DYSPEPSIA
     Dosage: 20 MG, 1X/DAY
     Route: 048
     Dates: start: 2013
  2. FUSID [Concomitant]
     Active Substance: FUROSEMIDE
     Dosage: 120 MG, DAILY
     Dates: start: 201510, end: 201510
  3. AEROVENT [Concomitant]
     Dosage: ADDED ONE DOSAGE FORM PER DAY
     Dates: start: 201510
  4. ALLORIL [Concomitant]
     Indication: GOUT
     Dosage: 200 MG AND 100 MG ALTERNATELY ONCE DAILY
     Route: 048
     Dates: start: 2000
  5. NORVASC [Concomitant]
     Active Substance: AMLODIPINE BESYLATE
     Dosage: 10 MG (2X1), 1X/DAY
     Route: 048
     Dates: start: 20150918, end: 20150920
  6. LIPITOR [Concomitant]
     Active Substance: ATORVASTATIN CALCIUM
     Indication: HYPERLIPIDAEMIA
     Dosage: 40 MG, 1X/DAY
     Route: 048
     Dates: start: 2006
  7. FUSID [Concomitant]
     Active Substance: FUROSEMIDE
     Dosage: 100 MG, DAILY
     Dates: start: 201510
  8. SILDENAFIL CITRATE. [Suspect]
     Active Substance: SILDENAFIL CITRATE
     Indication: PULMONARY HYPERTENSION
     Dosage: 3 TABLETS, 3X/DAY
     Route: 048
     Dates: start: 20150716
  9. NORVASC [Concomitant]
     Active Substance: AMLODIPINE BESYLATE
     Indication: HYPERTENSION
     Dosage: 5 MG, 1X/DAY
     Route: 048
     Dates: start: 2001
  10. PLAVIX [Concomitant]
     Active Substance: CLOPIDOGREL BISULFATE
     Indication: PERCUTANEOUS CORONARY INTERVENTION
     Dosage: 75 MG, 1X/DAY
     Route: 048
     Dates: start: 2008
  11. OMEPRADEX [Concomitant]
     Active Substance: OMEPRAZOLE
     Dosage: 80 MG, 1X/DAY
     Route: 048
     Dates: start: 20150723
  12. CONTROLOC /01263201/ [Concomitant]
     Indication: DYSPEPSIA
     Dosage: 80 MG, 1X/DAY
     Route: 048
     Dates: start: 20150903, end: 20150903
  13. AEROVENT [Concomitant]
     Indication: DYSPNOEA
     Dosage: ^2 ML^, 1X/DAY
     Route: 055
     Dates: start: 20151110
  14. ELTROXIN [Concomitant]
     Active Substance: LEVOTHYROXINE
     Indication: HYPOTHYROIDISM
     Dosage: 100 MG, 1X/DAY (6 TIMES PER WEEK)
     Route: 048
     Dates: start: 2010
  15. FUSID [Concomitant]
     Active Substance: FUROSEMIDE
     Indication: CARDIAC FAILURE
     Dosage: 80 MG, 1X/DAY
     Route: 048
     Dates: start: 20150716
  16. NORVASC [Concomitant]
     Active Substance: AMLODIPINE BESYLATE
     Dosage: 1*1, OCCASIONALY 1*2 REPORTED BY THE PATIENT
  17. FUSID [Concomitant]
     Active Substance: FUROSEMIDE
     Dosage: 60 MG, 1X/DAY
     Route: 048
     Dates: start: 20151210
  18. FUSID [Concomitant]
     Active Substance: FUROSEMIDE
     Dosage: 40 MG, 1X/DAY
     Route: 042
     Dates: start: 20150903, end: 20150913
  19. MAALOX ANTACID [Concomitant]
     Active Substance: ALUMINUM HYDROXIDE\DIMETHICONE\MAGNESIUM HYDROXIDE
     Indication: DYSPEPSIA
     Dosage: 30 MG, 1X/DAY
     Route: 048
     Dates: start: 20150903, end: 20150903

REACTIONS (5)
  - Chest pain [Recovered/Resolved]
  - Influenza [Recovered/Resolved]
  - Left ventricular failure [Recovered/Resolved]
  - Pulmonary congestion [Recovered/Resolved]
  - Bronchitis [Recovered/Resolved]

NARRATIVE: CASE EVENT DATE: 20150913
